FAERS Safety Report 9450058 (Version 1)
Quarter: 2013Q3

REPORT INFORMATION
  Report Type: Spontaneous
  Country: US (occurrence: US)
  Receive Date: 20130809
  Receipt Date: 20130809
  Transmission Date: 20140515
  Serious: Yes (Hospitalization, Other)
  Sender: FDA-Public Use
  Company Number: US-SANOFI-AVENTIS-2013SA079049

PATIENT
  Age: 51 Year
  Sex: Female

DRUGS (3)
  1. LANTUS SOLOSTAR [Suspect]
     Indication: DIABETES MELLITUS
     Dosage: PRODUCT START DATE 5 YEARS DOSE:12 UNIT(S)
     Route: 065
  2. NOVOLOG [Suspect]
     Dosage: 5-7 UNITS AT MEAL TIMES
     Route: 065
  3. SOLOSTAR [Concomitant]
     Indication: DIABETES MELLITUS

REACTIONS (4)
  - Hip fracture [Unknown]
  - Fall [Unknown]
  - Ketoacidosis [Unknown]
  - Blood glucose fluctuation [Unknown]
